FAERS Safety Report 19911344 (Version 1)
Quarter: 2021Q4

REPORT INFORMATION
  Report Type: Spontaneous
  Country: US (occurrence: US)
  Receive Date: 20211001
  Receipt Date: 20211001
  Transmission Date: 20220303
  Serious: Yes (Other)
  Sender: FDA-Public Use
  Company Number: None

PATIENT
  Sex: Female

DRUGS (2)
  1. RANITIDINE [Suspect]
     Active Substance: RANITIDINE
  2. RABEPRAZOLE [Suspect]
     Active Substance: RABEPRAZOLE

REACTIONS (2)
  - Headache [None]
  - Throat tightness [None]
